FAERS Safety Report 22086075 (Version 4)
Quarter: 2025Q4

REPORT INFORMATION
  Report Type: Spontaneous
  Country: EU (occurrence: EU)
  Receive Date: 20230310
  Receipt Date: 20251015
  Transmission Date: 20260117
  Serious: Yes (Hospitalization)
  Sender: PURDUE
  Company Number: EU-AFSSAPS-RN2023000241

PATIENT
  Age: 54 Year
  Sex: Female

DRUGS (9)
  1. OXYCODONE HYDROCHLORIDE [Suspect]
     Active Substance: OXYCODONE HYDROCHLORIDE
     Indication: Pain
     Dosage: UNK
     Route: 048
     Dates: start: 202301
  2. PRAZEPAM [Suspect]
     Active Substance: PRAZEPAM
     Indication: Anxiety
     Dosage: UNK
     Route: 048
     Dates: start: 202301
  3. NALOXEGOL OXALATE [Suspect]
     Active Substance: NALOXEGOL OXALATE
     Indication: Constipation
     Dosage: 25 MILLIGRAM, DAILY (25 MG PAR JOUR/ 25MG PER DAY)
     Route: 048
     Dates: start: 20230128, end: 20230223
  4. PANTOPRAZOLE [Suspect]
     Active Substance: PANTOPRAZOLE
     Indication: Prophylaxis against gastrointestinal ulcer
     Dosage: 20 MILLIGRAM, DAILY (20 MG IN THE EVENING)
     Route: 048
     Dates: start: 20230109, end: 20230223
  5. METRONIDAZOLE [Suspect]
     Active Substance: METRONIDAZOLE
     Indication: Infection
     Dosage: 500 MILLIGRAM, Q8H (500 MG TOUTES LES 8 HEURES/ 500MG EVERY 8 HOURS)
     Route: 048
     Dates: start: 20230215, end: 20230221
  6. CEFEPIME [Suspect]
     Active Substance: CEFEPIME HYDROCHLORIDE
     Indication: Infection
     Dosage: 2 GRAM, Q8H (2 G EVERY 8 HOURS)
     Route: 065
     Dates: start: 20230126, end: 20230228
  7. ONDANSETRON [Suspect]
     Active Substance: ONDANSETRON
     Indication: Nausea
     Dosage: 8 MILLIGRAM, DAILY (4 MG MORNING AND EVENING)
     Route: 065
     Dates: start: 20230202, end: 20230223
  8. DAPTOMYCIN [Suspect]
     Active Substance: DAPTOMYCIN
     Indication: Infection
     Dosage: 500 MILLIGRAM, DAILY (500 MG PAR JOUR/ 500MG PER DAY)
     Route: 042
     Dates: start: 20230215, end: 20230221
  9. LOVENOX [Suspect]
     Active Substance: ENOXAPARIN SODIUM
     Indication: Thrombosis prophylaxis
     Dosage: 4000 INTERNATIONAL UNIT, DAILY (4000 UI TOUS LES JOURS/ 4000 IU DAILY)
     Route: 058
     Dates: start: 20230126

REACTIONS (1)
  - Neutropenia [Not Recovered/Not Resolved]

NARRATIVE: CASE EVENT DATE: 20230220
